FAERS Safety Report 7161691-8 (Version None)
Quarter: 2010Q4

REPORT INFORMATION
  Report Type: 
  Country: None (occurrence: None)
  Receive Date: 20101215
  Receipt Date: 20101201
  Transmission Date: 20110411
  Serious: Yes (Death)
  Sender: FDA-Public Use
  Company Number: US-KINGPHARMUSA00001-K201001477

PATIENT
  Age: 17 Year
  Sex: Male

DRUGS (3)
  1. EMBEDA [Suspect]
     Dosage: UNK
     Dates: start: 20101106, end: 20101106
  2. PERCOCET [Suspect]
     Dosage: UNK
     Route: 045
     Dates: start: 20101106, end: 20101106
  3. XANAX [Suspect]
     Dosage: UNK
     Dates: start: 20101106, end: 20101106

REACTIONS (3)
  - DRUG ABUSE [None]
  - DRUG DIVERSION [None]
  - MULTIPLE DRUG OVERDOSE [None]
